FAERS Safety Report 25936136 (Version 3)
Quarter: 2025Q4

REPORT INFORMATION
  Report Type: Report from Study
  Country: CH (occurrence: CH)
  Receive Date: 20251017
  Receipt Date: 20251031
  Transmission Date: 20260118
  Serious: Yes (Hospitalization, Other)
  Sender: NOVARTIS
  Company Number: CH-002147023-NVSC2025CH090464

PATIENT
  Age: 52 Year
  Sex: Female
  Weight: 97 kg

DRUGS (2)
  1. LEQVIO [Suspect]
     Active Substance: INCLISIRAN SODIUM
     Indication: Hypercholesterolaemia
     Dosage: 284 MG (EVERY 6 MONTHS)
     Route: 058
     Dates: start: 20240516, end: 20250929
  2. TORSEMIDE [Concomitant]
     Active Substance: TORSEMIDE
     Indication: Hypertension
     Dosage: UNK, PRN
     Route: 065

REACTIONS (6)
  - Heart failure with preserved ejection fraction [Recovering/Resolving]
  - Headache [Unknown]
  - Hypertension [Unknown]
  - Hypothyroidism [Not Recovered/Not Resolved]
  - Depression [Recovering/Resolving]
  - Borderline personality disorder [Not Recovered/Not Resolved]

NARRATIVE: CASE EVENT DATE: 20241101
